FAERS Safety Report 4489865-5 (Version None)
Quarter: 2004Q4

REPORT INFORMATION
  Report Type: 
  Country: None (occurrence: None)
  Receive Date: 20041026
  Receipt Date: 20041007
  Transmission Date: 20050328
  Serious: Yes (Hospitalization)
  Sender: FDA-Public Use
  Company Number: M2004-1567

PATIENT
  Age: 46 Year
  Sex: Female
  Weight: 41 kg

DRUGS (2)
  1. ISONIAZID [Suspect]
     Indication: PULMONARY TUBERCULOSIS
     Dosage: 400MG/DAY
     Dates: start: 20011101, end: 20020101
  2. RIMACTANE [Concomitant]
     Indication: PULMONARY TUBERCULOSIS
     Dosage: 750 MG/DAY
     Dates: start: 20011101, end: 20020101

REACTIONS (5)
  - ANAEMIA [None]
  - CLOSTRIDIUM COLITIS [None]
  - INFLAMMATION [None]
  - MELAENA [None]
  - RENAL IMPAIRMENT [None]
